FAERS Safety Report 6919144-5 (Version None)
Quarter: 2010Q3

REPORT INFORMATION
  Report Type: 
  Country: None (occurrence: None)
  Receive Date: 20100811
  Receipt Date: 20100805
  Transmission Date: 20110219
  Serious: Yes (Hospitalization)
  Sender: FDA-Public Use
  Company Number: DE-ABBOTT-10P-062-0658826-00

PATIENT
  Age: 27 Year
  Sex: Female

DRUGS (5)
  1. RITONAVIR [Suspect]
     Indication: HIV INFECTION
  2. RITONAVIR [Suspect]
  3. TRIAMCINOLONE ACETONIDE [Interacting]
     Indication: BACK PAIN
  4. TRIAMCINOLONE ACETONIDE [Interacting]
  5. TRIAMCINOLONE ACETONIDE [Interacting]

REACTIONS (2)
  - CUSHING'S SYNDROME [None]
  - DRUG INTERACTION [None]
